FAERS Safety Report 7406720-9 (Version None)
Quarter: 2011Q2

REPORT INFORMATION
  Report Type: 
  Country: None (occurrence: None)
  Receive Date: 20110411
  Receipt Date: 20110106
  Transmission Date: 20111010
  Serious: No
  Sender: FDA-Public Use
  Company Number: US-BAYER-2011-007939

PATIENT
  Sex: Female
  Weight: 56.236 kg

DRUGS (5)
  1. CELEBREX [Concomitant]
  2. HYDROCODONE BITARTRATE [Concomitant]
     Indication: ARTHRALGIA
  3. ALEVE (CAPLET) [Suspect]
     Indication: ARTHRALGIA
     Dosage: UNK, BID, BOTTLE COUNT 100CT
     Route: 048
  4. PREVACID [Concomitant]
     Indication: GASTRITIS
     Dosage: 30 MG, UNK
  5. ADVIL PM [Concomitant]

REACTIONS (2)
  - GASTRITIS [None]
  - OESOPHAGITIS [None]
